FAERS Safety Report 17137740 (Version 1)
Quarter: 2019Q4

REPORT INFORMATION
  Report Type: Spontaneous
  Country: US (occurrence: US)
  Receive Date: 20191120
  Receipt Date: 20191120
  Transmission Date: 20200122
  Serious: No
  Sender: FDA-Public Use
  Company Number: None

PATIENT
  Age: 63 Year
  Sex: Female

DRUGS (1)
  1. IBRANCE [Suspect]
     Active Substance: PALBOCICLIB
     Route: 048
     Dates: start: 201808

REACTIONS (3)
  - Hypoaesthesia [None]
  - Gait disturbance [None]
  - Neuropathy peripheral [None]

NARRATIVE: CASE EVENT DATE: 20191120
